FAERS Safety Report 7939893-X (Version None)
Quarter: 2011Q4

REPORT INFORMATION
  Report Type: 
  Country: None (occurrence: None)
  Receive Date: 20111125
  Receipt Date: 20110912
  Transmission Date: 20120403
  Serious: No
  Sender: FDA-Public Use
  Company Number: US-BAYER-2011-089984

PATIENT
  Age: 55 Year
  Sex: Male
  Weight: 93 kg

DRUGS (6)
  1. VITAMIN D [Concomitant]
  2. ASCORBIC ACID [Concomitant]
  3. ALEVE (CAPLET) [Suspect]
     Indication: ANALGESIC THERAPY
     Dosage: UNK, TID
     Route: 048
     Dates: start: 20110801
  4. PROTEIN SUPPLEMENTS [Concomitant]
  5. UNKNOWN [Concomitant]
  6. MULTI-VITAMIN [Concomitant]

REACTIONS (1)
  - NO ADVERSE EVENT [None]
